FAERS Safety Report 5376017-X (Version None)
Quarter: 2007Q2

REPORT INFORMATION
  Report Type: 
  Country: None (occurrence: None)
  Receive Date: 20070627
  Receipt Date: 20070627
  Transmission Date: 20071010
  Serious: No
  Sender: FDA-Public Use
  Company Number: None

PATIENT
  Sex: Female

DRUGS (1)
  1. PAXIL [Suspect]
     Dosage: 20MG QDAY PO
     Route: 048
     Dates: start: 20070614, end: 20070625

REACTIONS (2)
  - DIZZINESS [None]
  - SEDATION [None]
